FAERS Safety Report 4356919-3 (Version None)
Quarter: 2004Q2

REPORT INFORMATION
  Report Type: 
  Country: None (occurrence: None)
  Receive Date: 20040507
  Receipt Date: 20040421
  Transmission Date: 20050107
  Serious: Yes (Hospitalization, Other)
  Sender: FDA-Public Use
  Company Number: 8006060

PATIENT
  Sex: Male

DRUGS (3)
  1. KEPPRA [Suspect]
     Indication: EPILEPSY
     Dosage: 250 MG 2/D PC
     Dates: start: 20040101
  2. CARBAMAZEPINE [Concomitant]
  3. LAMOTRIGINE [Concomitant]

REACTIONS (1)
  - PNEUMONITIS [None]
